FAERS Safety Report 4764693-1 (Version None)
Quarter: 2005Q3

REPORT INFORMATION
  Report Type: 
  Country: None (occurrence: None)
  Receive Date: 20050909
  Receipt Date: 20050311
  Transmission Date: 20060218
  Serious: Yes (Hospitalization, Other)
  Sender: FDA-Public Use
  Company Number: US-MERCK-0503USA02684

PATIENT
  Age: 48 Year
  Sex: Male
  Weight: 73 kg

DRUGS (4)
  1. VIOXX [Suspect]
     Indication: ARTHRITIS
     Route: 048
     Dates: start: 20000101, end: 20020130
  2. VIOXX [Suspect]
     Route: 048
     Dates: start: 20000101, end: 20020201
  3. VIOXX [Suspect]
     Indication: BACK PAIN
     Route: 048
     Dates: start: 20000101, end: 20020130
  4. VIOXX [Suspect]
     Route: 048
     Dates: start: 20000101, end: 20020201

REACTIONS (14)
  - ANXIETY [None]
  - BARRETT'S OESOPHAGUS [None]
  - CHEST DISCOMFORT [None]
  - CORONARY ARTERY DISEASE [None]
  - DEPRESSION [None]
  - DYSPNOEA [None]
  - FATIGUE [None]
  - GASTRITIS EROSIVE [None]
  - HIATUS HERNIA [None]
  - HYPERLIPIDAEMIA [None]
  - MYOCARDIAL INFARCTION [None]
  - OESOPHAGITIS ULCERATIVE [None]
  - PAIN IN JAW [None]
  - UPPER GASTROINTESTINAL HAEMORRHAGE [None]
